FAERS Safety Report 8810718 (Version 1)
Quarter: 2012Q4

REPORT INFORMATION
  Report Type: 
  Country: US (occurrence: US)
  Receive Date: 20120927
  Receipt Date: 20120927
  Transmission Date: 20130627
  Serious: Yes (Other)
  Sender: FDA-Public Use
  Company Number: US-PFIZER INC-2012237092

PATIENT
  Age: 49 Year
  Sex: Male
  Weight: 94.79 kg

DRUGS (10)
  1. SUTENT [Suspect]
     Dosage: 50 mg, UNK
     Dates: start: 20120623
  2. METFORMIN [Concomitant]
     Indication: DIABETES MELLITUS
     Dosage: 500 mg, 1x/day
  3. LOSARTAN [Concomitant]
     Indication: HYPERTENSION
     Dosage: 50 mg, 1x/day
  4. CENTRUM [Concomitant]
     Dosage: UNK, 1x/day
  5. TYLENOL [Concomitant]
     Dosage: UNK, as needed
  6. AMBIEN [Concomitant]
     Dosage: UNK, as needed
  7. BENZONATATE [Concomitant]
     Dosage: UNK, as needed
  8. NORCO [Concomitant]
     Dosage: UNK
  9. ROBITUSSIN [Concomitant]
     Dosage: UNK, as needed
  10. GEMFIBROZIL [Concomitant]
     Indication: HYPERTENSION
     Dosage: 600 mg, 1x/day

REACTIONS (4)
  - Haemorrhage [Unknown]
  - Cough [Unknown]
  - Rash [Unknown]
  - Weight decreased [Unknown]
